FAERS Safety Report 18641119 (Version 1)
Quarter: 2020Q4

REPORT INFORMATION
  Report Type: Spontaneous
  Country: GB (occurrence: GB)
  Receive Date: 20201221
  Receipt Date: 20201221
  Transmission Date: 20210114
  Serious: Yes (Other)
  Sender: FDA-Public Use
  Company Number: GB-TEVA-2020-GB-1859512

PATIENT
  Age: 20 Year
  Sex: Female
  Weight: 53.07 kg

DRUGS (1)
  1. NITROFURANTOIN. [Suspect]
     Active Substance: NITROFURANTOIN
     Indication: URINARY TRACT INFECTION
     Dosage: 200 GBQ DAILY; AFTER A MEAL IN THE MORNING AND THE EVENING
     Route: 048
     Dates: start: 20201118, end: 20201121

REACTIONS (10)
  - Migraine [Not Recovered/Not Resolved]
  - Headache [Unknown]
  - Decreased appetite [Not Recovered/Not Resolved]
  - Somnolence [Unknown]
  - Mood altered [Not Recovered/Not Resolved]
  - Fatigue [Not Recovered/Not Resolved]
  - Head discomfort [Unknown]
  - Depression [Not Recovered/Not Resolved]
  - Suicidal ideation [Unknown]
  - Nausea [Not Recovered/Not Resolved]

NARRATIVE: CASE EVENT DATE: 20201118
